FAERS Safety Report 21791481 (Version 1)
Quarter: 2022Q4

REPORT INFORMATION
  Report Type: Report from Study
  Country: US (occurrence: US)
  Receive Date: 20221228
  Receipt Date: 20221228
  Transmission Date: 20230112
  Serious: Yes (Other)
  Sender: FDA-Public Use
  Company Number: US-ABBVIE-4251582

PATIENT
  Age: 59 Year
  Sex: Female

DRUGS (1)
  1. RINVOQ [Suspect]
     Active Substance: UPADACITINIB
     Indication: Rheumatoid arthritis
     Dosage: FORM STRENGTH: 15 MG
     Route: 048
     Dates: start: 202211, end: 202212

REACTIONS (9)
  - Gallbladder operation [Unknown]
  - General physical condition abnormal [Unknown]
  - Loss of personal independence in daily activities [Unknown]
  - Impaired self-care [Unknown]
  - Musculoskeletal stiffness [Recovering/Resolving]
  - Mobility decreased [Unknown]
  - Grip strength decreased [Unknown]
  - Gait disturbance [Unknown]
  - Pain [Recovering/Resolving]

NARRATIVE: CASE EVENT DATE: 20221201
